FAERS Safety Report 4629491-8 (Version None)
Quarter: 2005Q2

REPORT INFORMATION
  Report Type: 
  Country: None (occurrence: None)
  Receive Date: 20050405
  Receipt Date: 20050322
  Transmission Date: 20051028
  Serious: Yes (Other)
  Sender: FDA-Public Use
  Company Number: S05-UKI-01324-01

PATIENT
  Sex: Male

DRUGS (1)
  1. CIPRALEX (ESCITALORAM) [Suspect]
     Dosage: 20 MG PO
     Route: 048

REACTIONS (2)
  - ADAMS-STOKES SYNDROME [None]
  - ARRHYTHMIA [None]
